FAERS Safety Report 4578516-7 (Version None)
Quarter: 2005Q1

REPORT INFORMATION
  Report Type: 
  Country: None (occurrence: None)
  Receive Date: 20050207
  Receipt Date: 20050207
  Transmission Date: 20050727
  Serious: No
  Sender: FDA-Public Use
  Company Number: None

PATIENT
  Age: 59 Year
  Sex: Male
  Weight: 90.7194 kg

DRUGS (1)
  1. LIPITOR [Suspect]
     Indication: LOW DENSITY LIPOPROTEIN
     Dosage: 10MG   1 DAY  ORAL
     Route: 048
     Dates: start: 20040207, end: 20040601

REACTIONS (1)
  - VISUAL DISTURBANCE [None]
